FAERS Safety Report 5380350-5 (Version None)
Quarter: 2007Q3

REPORT INFORMATION
  Report Type: 
  Country: None (occurrence: None)
  Receive Date: 20070706
  Receipt Date: 20070521
  Transmission Date: 20080115
  Serious: No
  Sender: FDA-Public Use
  Company Number: A0652152A

PATIENT
  Age: 55 Year
  Sex: Female

DRUGS (12)
  1. TYKERB [Suspect]
     Indication: BREAST CANCER
     Dosage: 5TAB PER DAY
     Route: 048
     Dates: start: 20070411
  2. OXYCONTIN [Concomitant]
  3. EMEND [Concomitant]
  4. XANAX [Concomitant]
  5. NEXIUM [Concomitant]
  6. NORVASC [Concomitant]
  7. SODIUM BICARB [Concomitant]
  8. PROVIGIL [Concomitant]
  9. ABRAXANE [Concomitant]
  10. UNSPECIFIED MEDICATION [Concomitant]
  11. AGGRENOX [Concomitant]
  12. ZOLOFT [Concomitant]

REACTIONS (6)
  - ANOREXIA [None]
  - CONSTIPATION [None]
  - DIARRHOEA [None]
  - DYSPEPSIA [None]
  - ERUCTATION [None]
  - NAUSEA [None]
